FAERS Safety Report 7270000-5 (Version None)
Quarter: 2011Q1

REPORT INFORMATION
  Report Type: 
  Country: None (occurrence: None)
  Receive Date: 20110202
  Receipt Date: 20110119
  Transmission Date: 20110831
  Serious: Yes (Other)
  Sender: FDA-Public Use
  Company Number: US-SANOFI-AVENTIS-2011SA004719

PATIENT
  Sex: Female

DRUGS (14)
  1. SIMVASTATIN [Concomitant]
  2. NEURONTIN [Concomitant]
  3. PROBENECID [Concomitant]
  4. LEVOXYL [Concomitant]
  5. ATENOLOL [Concomitant]
  6. DIOVAN [Concomitant]
  7. TRAMADOL HCL [Concomitant]
  8. MULTAQ [Suspect]
     Indication: ATRIAL FIBRILLATION
     Route: 048
     Dates: start: 20101102, end: 20110117
  9. MAGNESIUM [Concomitant]
  10. ALLEGRA [Concomitant]
  11. VICODIN [Concomitant]
  12. CIMETIDINE [Concomitant]
  13. TEMAZEPAM [Concomitant]
  14. XANAX [Concomitant]

REACTIONS (2)
  - MYALGIA [None]
  - MIXED LIVER INJURY [None]
